FAERS Safety Report 19330495 (Version 1)
Quarter: 2021Q2

REPORT INFORMATION
  Report Type: Report from Study
  Country: US (occurrence: US)
  Receive Date: 20210528
  Receipt Date: 20210528
  Transmission Date: 20210717
  Serious: Yes (Other)
  Sender: FDA-Public Use
  Company Number: US-ASTRAZENECA-2021A465733

PATIENT
  Age: 461 Month
  Sex: Male
  Weight: 104.3 kg

DRUGS (5)
  1. TRAZODONE [Concomitant]
     Active Substance: TRAZODONE HYDROCHLORIDE
  2. MARIJUNAN [Concomitant]
  3. TRAMADOL. [Concomitant]
     Active Substance: TRAMADOL
  4. KOSELUGO [Suspect]
     Active Substance: SELUMETINIB
     Indication: BENIGN NEOPLASM
     Route: 048
     Dates: start: 20201002
  5. DOXYCYCLINE. [Concomitant]
     Active Substance: DOXYCYCLINE

REACTIONS (1)
  - Cardiac dysfunction [Not Recovered/Not Resolved]

NARRATIVE: CASE EVENT DATE: 202105
